FAERS Safety Report 26130413 (Version 3)
Quarter: 2025Q4

REPORT INFORMATION
  Report Type: Spontaneous
  Country: US (occurrence: US)
  Receive Date: 20251208
  Receipt Date: 20251230
  Transmission Date: 20260118
  Serious: No
  Sender: MYLAN
  Company Number: US-MYLANLABS-2025M1104009

PATIENT
  Age: 48 Year
  Sex: Female
  Weight: 134.26 kg

DRUGS (3)
  1. LEVOTHYROXINE SODIUM [Suspect]
     Active Substance: LEVOTHYROXINE SODIUM
     Indication: Product used for unknown indication
     Dosage: UNK
  2. LEVOTHYROXINE SODIUM [Suspect]
     Active Substance: LEVOTHYROXINE SODIUM
     Dosage: UNK
  3. Zyrtex [Concomitant]
     Dosage: UNK, PM (HALF A PILL EVERY NIGHT)

REACTIONS (28)
  - Heart rate irregular [Unknown]
  - Palpitations [Unknown]
  - Irritability [Unknown]
  - Nervousness [Unknown]
  - Tremor [Unknown]
  - Mood swings [Unknown]
  - Insomnia [Unknown]
  - Temperature intolerance [Unknown]
  - Hyperhidrosis [Unknown]
  - Diarrhoea [Unknown]
  - Frequent bowel movements [Unknown]
  - Muscular weakness [Unknown]
  - Alopecia [Unknown]
  - Disturbance in attention [Unknown]
  - Memory impairment [Unknown]
  - Thyroid disorder [Unknown]
  - Brain fog [Unknown]
  - Fatigue [Unknown]
  - Peripheral coldness [Unknown]
  - Weight increased [Unknown]
  - Arthralgia [Unknown]
  - Headache [Unknown]
  - Dry eye [Unknown]
  - Hair texture abnormal [Unknown]
  - Visual impairment [Unknown]
  - Impaired quality of life [Unknown]
  - Overdose [Unknown]
  - Product substitution issue [Unknown]

NARRATIVE: CASE EVENT DATE: 20241101
